FAERS Safety Report 4835607-0 (Version None)
Quarter: 2005Q4

REPORT INFORMATION
  Report Type: 
  Country: None (occurrence: None)
  Receive Date: 20051121
  Receipt Date: 20051111
  Transmission Date: 20060501
  Serious: Yes (Death)
  Sender: FDA-Public Use
  Company Number: 2005155204

PATIENT
  Age: 55 Year
  Sex: Male

DRUGS (7)
  1. NIFEDIPINE [Suspect]
     Indication: ILL-DEFINED DISORDER
     Dosage: 30 MG, ORAL
     Route: 048
  2. ATENOLOL [Suspect]
     Indication: ILL-DEFINED DISORDER
     Dosage: 150 MG (QD), ORAL
     Route: 048
  3. PLAVIX [Suspect]
     Indication: ILL-DEFINED DISORDER
     Dosage: 75 MG (QD),ORAL
     Route: 048
  4. EZETROL (EZETIMIBE) [Suspect]
     Indication: ILL-DEFINED DISORDER
     Dosage: 10 MG (QD), ORAL
     Route: 048
  5. PERINDOPRIL (PERINDOPRIL) [Suspect]
     Indication: ILL-DEFINED DISORDER
     Dosage: 2 MG (QD), ORAL
     Route: 048
  6. CRESTOR [Suspect]
     Indication: ILL-DEFINED DISORDER
     Dosage: 10 MG (QD), ORAL
     Route: 048
  7. PRAVASTATIN [Concomitant]

REACTIONS (5)
  - CARDIAC ARREST [None]
  - CARDIAC FIBRILLATION [None]
  - MYALGIA [None]
  - SEASONAL ALLERGY [None]
  - TRACHEITIS [None]
